FAERS Safety Report 8690819 (Version 2)
Quarter: 2012Q4

REPORT INFORMATION
  Report Type: 
  Country: NL (occurrence: NL)
  Receive Date: 20120729
  Receipt Date: 20121014
  Transmission Date: 20130627
  Serious: Yes (Hospitalization, Other)
  Sender: FDA-Public Use
  Company Number: NL-TEVA-349483ISR

PATIENT
  Age: 52 Year
  Sex: Female

DRUGS (4)
  1. COPAXONE [Suspect]
     Indication: MULTIPLE SCLEROSIS
     Dosage: 20 Milligram Daily;
     Route: 058
     Dates: start: 20051124
  2. ANGELIQUE [Concomitant]
     Indication: MENOPAUSE
  3. SIMVASTATIN [Concomitant]
  4. AMITRIPTYLINE [Concomitant]

REACTIONS (2)
  - Fall [Recovered/Resolved]
  - Hip fracture [Recovered/Resolved]
